FAERS Safety Report 5469801-5 (Version None)
Quarter: 2007Q3

REPORT INFORMATION
  Report Type: 
  Country: None (occurrence: None)
  Receive Date: 20070927
  Receipt Date: 20070918
  Transmission Date: 20080115
  Serious: Yes (Other)
  Sender: FDA-Public Use
  Company Number: US-AMGEN-US237207

PATIENT
  Sex: Male
  Weight: 78.9 kg

DRUGS (12)
  1. PROCRIT [Suspect]
     Indication: HIV INFECTION
     Dates: start: 20040101, end: 20070717
  2. TRUVADA [Concomitant]
     Indication: HIV INFECTION
  3. SUSTIVA [Concomitant]
     Indication: HIV INFECTION
  4. BACTRIM [Concomitant]
  5. NEXIUM [Concomitant]
  6. IRON [Concomitant]
  7. ANDROGEL [Concomitant]
  8. AMITRIPTYLINE HCL [Concomitant]
  9. SEROQUEL [Concomitant]
  10. MIRTAZAPINE [Concomitant]
  11. AMBIEN [Concomitant]
  12. VICODIN [Concomitant]

REACTIONS (1)
  - THERAPEUTIC RESPONSE DECREASED [None]
